FAERS Safety Report 17213580 (Version 1)
Quarter: 2019Q4

REPORT INFORMATION
  Report Type: Spontaneous
  Country: CN (occurrence: CN)
  Receive Date: 20191230
  Receipt Date: 20191230
  Transmission Date: 20200122
  Serious: Yes (Hospitalization)
  Sender: FDA-Public Use
  Company Number: CN-ROCHE-2506425

PATIENT
  Age: 56 Year
  Sex: Female
  Weight: 62 kg

DRUGS (4)
  1. LOBAPLATIN [Suspect]
     Active Substance: LOBAPLATIN
     Indication: CERVIX CARCINOMA
     Route: 041
     Dates: start: 20191121, end: 20191121
  2. AVASTIN [Suspect]
     Active Substance: BEVACIZUMAB
     Indication: CERVIX CARCINOMA
     Route: 041
     Dates: start: 20191121, end: 20191121
  3. SODIUM CHLORIDE IV [Concomitant]
     Active Substance: SODIUM CHLORIDE
     Route: 041
     Dates: start: 20191121, end: 20191121
  4. GLUCOSE [Concomitant]
     Active Substance: DEXTROSE
     Route: 041

REACTIONS (5)
  - Vomiting [Recovering/Resolving]
  - Intentional product use issue [Unknown]
  - Nausea [Recovering/Resolving]
  - Off label use [Unknown]
  - Bone marrow failure [Recovering/Resolving]

NARRATIVE: CASE EVENT DATE: 20191121
